FAERS Safety Report 6736838-5 (Version None)
Quarter: 2010Q2

REPORT INFORMATION
  Report Type: 
  Country: None (occurrence: None)
  Receive Date: 20100521
  Receipt Date: 20100509
  Transmission Date: 20101027
  Serious: Yes (Hospitalization, Other)
  Sender: FDA-Public Use
  Company Number: US-ROCHE-687650

PATIENT
  Sex: Female

DRUGS (6)
  1. PEGASYS [Suspect]
     Indication: HEPATITIS C
     Dosage: FORM: PRE-FILLED SYRINGE
     Route: 058
     Dates: start: 20100205
  2. RIBAVIRIN [Suspect]
     Indication: HEPATITIS C
     Route: 048
     Dates: start: 20100205
  3. METFORMIN HCL [Concomitant]
  4. ZETIA [Concomitant]
  5. PROTONIX [Concomitant]
     Dosage: INDICATION: PRE-TREATMENT
  6. BUPROPION HCL [Concomitant]
     Dosage: INDICATION: PRE-TREATMENT

REACTIONS (7)
  - APHASIA [None]
  - FATIGUE [None]
  - GLOSSODYNIA [None]
  - MOOD SWINGS [None]
  - NAUSEA [None]
  - TREMOR [None]
  - VOMITING [None]
